FAERS Safety Report 20778175 (Version 3)
Quarter: 2022Q3

REPORT INFORMATION
  Report Type: Report from Study
  Country: IN (occurrence: IN)
  Receive Date: 20220503
  Receipt Date: 20220824
  Transmission Date: 20221027
  Serious: Yes (Death)
  Sender: FDA-Public Use
  Company Number: IN-NOVARTISPH-NVSC2022IN101340

PATIENT
  Age: 53 Year
  Sex: Female

DRUGS (2)
  1. RIBOCICLIB [Suspect]
     Active Substance: RIBOCICLIB
     Indication: Breast cancer metastatic
     Dosage: 600 MG, QD
     Route: 065
     Dates: start: 20191104
  2. RIBOCICLIB [Suspect]
     Active Substance: RIBOCICLIB
     Dosage: 600 MG, QD
     Route: 065
     Dates: start: 20210322

REACTIONS (9)
  - Cardiac arrest [Fatal]
  - Hypoaesthesia [Unknown]
  - Pain [Unknown]
  - Weight increased [Unknown]
  - Paraesthesia [Unknown]
  - Asthenia [Unknown]
  - Vomiting [Unknown]
  - Abdominal pain upper [Unknown]
  - Back pain [Unknown]

NARRATIVE: CASE EVENT DATE: 20191104
